FAERS Safety Report 14624832 (Version 8)
Quarter: 2018Q3

REPORT INFORMATION
  Report Type: Spontaneous
  Country: US (occurrence: US)
  Receive Date: 20180312
  Receipt Date: 20180727
  Transmission Date: 20181010
  Serious: No
  Sender: FDA-Public Use
  Company Number: US-PFIZER INC-2018101092

PATIENT
  Age: 83 Year
  Sex: Male
  Weight: 77 kg

DRUGS (6)
  1. PANTOPRAZOLE [Concomitant]
     Active Substance: PANTOPRAZOLE
     Indication: BARRETT^S OESOPHAGUS
     Dosage: 40 MG, 1X/DAY
     Route: 048
  2. XELJANZ XR [Suspect]
     Active Substance: TOFACITINIB CITRATE
     Indication: RHEUMATOID ARTHRITIS
     Dosage: 11 MG, 1X/DAY [IN THE MORNING]
     Route: 048
     Dates: start: 20180301
  3. CELECOXIB. [Concomitant]
     Active Substance: CELECOXIB
     Indication: RHEUMATOID ARTHRITIS
     Dosage: 200 MG, 2X/DAY
  4. AMOXICILLIN. [Concomitant]
     Active Substance: AMOXICILLIN
     Indication: DENTAL OPERATION
     Dosage: UNK
  5. PANTOPRAZOLE [Concomitant]
     Active Substance: PANTOPRAZOLE
     Dosage: 40 MG, 1X/DAY
     Route: 048
     Dates: start: 201802
  6. CELECOXIB. [Concomitant]
     Active Substance: CELECOXIB
     Indication: INFLAMMATION

REACTIONS (2)
  - Pain [Not Recovered/Not Resolved]
  - Tooth infection [Unknown]

NARRATIVE: CASE EVENT DATE: 2018
